FAERS Safety Report 25979441 (Version 1)
Quarter: 2025Q4

REPORT INFORMATION
  Report Type: Spontaneous
  Country: US (occurrence: None)
  Receive Date: 20251029
  Receipt Date: 20251029
  Transmission Date: 20260119
  Serious: Yes (Life-Threatening, Hospitalization, Disabling)
  Sender: FDA-CTU
  Company Number: None

PATIENT
  Age: 42 Year
  Sex: Female
  Weight: 66.6 kg

DRUGS (7)
  1. KEYTRUDA [Suspect]
     Active Substance: PEMBROLIZUMAB
     Indication: Triple negative breast cancer
     Dates: start: 20241121, end: 20250909
  2. PACLITAXEL [Concomitant]
     Active Substance: PACLITAXEL
  3. CARBOPLATIN [Concomitant]
     Active Substance: CARBOPLATIN
  4. Keynote 522 [Concomitant]
  5. TRODELVY [Concomitant]
     Active Substance: SACITUZUMAB GOVITECAN-HZIY
  6. SYNTHROID [Concomitant]
     Active Substance: LEVOTHYROXINE SODIUM
  7. VITAMIN D [Concomitant]
     Active Substance: VITAMIN D NOS

REACTIONS (5)
  - Thyroid disorder [None]
  - Type 1 diabetes mellitus [None]
  - Diabetic ketoacidosis [None]
  - Fungal infection [None]
  - Dyspnoea [None]

NARRATIVE: CASE EVENT DATE: 20250926
